FAERS Safety Report 18724405 (Version 1)
Quarter: 2021Q1

REPORT INFORMATION
  Report Type: Spontaneous
  Country: US (occurrence: US)
  Receive Date: 20210110
  Receipt Date: 20210110
  Transmission Date: 20210419
  Serious: No
  Sender: FDA-Public Use
  Company Number: None

PATIENT
  Age: 37 Year
  Sex: Female
  Weight: 112.5 kg

DRUGS (10)
  1. TALTZ [Suspect]
     Active Substance: IXEKIZUMAB
     Indication: PSORIATIC ARTHROPATHY
     Dosage: ?          QUANTITY:2 INJECTION(S);OTHER FREQUENCY:1 EVERY 2 WEEKS;?
     Route: 058
     Dates: start: 20200623, end: 20200915
  2. LEVONORGESTREL. [Concomitant]
     Active Substance: LEVONORGESTREL
  3. IUD NOS [Concomitant]
     Active Substance: COPPER OR LEVONORGESTREL
  4. MELOXICAM. [Concomitant]
     Active Substance: MELOXICAM
  5. COLLAGEN [Concomitant]
     Active Substance: COLLAGEN
  6. LISINOPRIL. [Concomitant]
     Active Substance: LISINOPRIL
  7. VITAL PROTEINS [Concomitant]
  8. TALTZ [Suspect]
     Active Substance: IXEKIZUMAB
     Indication: PSORIATIC ARTHROPATHY
     Dosage: ?          QUANTITY:3 INJECTION(S);OTHER FREQUENCY:2 ON WEEK 0;?
     Route: 058
     Dates: start: 20200623, end: 20200915
  9. CARVEDIOL [Concomitant]
     Active Substance: CARVEDILOL
  10. PEPTIDES [Concomitant]

REACTIONS (1)
  - Alopecia [None]

NARRATIVE: CASE EVENT DATE: 20200630
